FAERS Safety Report 12934991 (Version 1)
Quarter: 2016Q4

REPORT INFORMATION
  Report Type: Spontaneous
  Country: US (occurrence: US)
  Receive Date: 20161113
  Receipt Date: 20161113
  Transmission Date: 20170207
  Serious: Yes (Hospitalization)
  Sender: FDA-Public Use
  Company Number: US-BEH-2016075140

PATIENT
  Age: 52 Year
  Sex: Male

DRUGS (7)
  1. BERINERT [Suspect]
     Active Substance: HUMAN C1-ESTERASE INHIBITOR
     Indication: HEREDITARY ANGIOEDEMA
     Dosage: 1000 IU, PRN
     Route: 042
     Dates: start: 201609
  2. RUCONEST [Concomitant]
     Active Substance: HUMAN C1-ESTERASE INHIBITOR
     Indication: PYREXIA
     Dosage: UNK
     Route: 065
     Dates: start: 20161029
  3. FIRAZYR [Concomitant]
     Active Substance: ICATIBANT ACETATE
     Indication: SWOLLEN TONGUE
  4. RUCONEST [Concomitant]
     Active Substance: HUMAN C1-ESTERASE INHIBITOR
     Indication: GASTRIC DILATATION
     Dosage: UNK
     Route: 065
     Dates: start: 20161028
  5. FIRAZYR [Concomitant]
     Active Substance: ICATIBANT ACETATE
     Indication: GASTRIC DILATATION
     Dosage: UNK
     Route: 065
     Dates: start: 20161029
  6. FIRAZYR [Concomitant]
     Active Substance: ICATIBANT ACETATE
     Indication: PYREXIA
     Dosage: UNK
     Route: 065
     Dates: start: 20161030
  7. RUCONEST [Concomitant]
     Active Substance: HUMAN C1-ESTERASE INHIBITOR
     Indication: SWOLLEN TONGUE
     Dosage: UNK
     Route: 065
     Dates: start: 20161030

REACTIONS (2)
  - Central venous catheter removal [Unknown]
  - Central venous catheterisation [Unknown]
